FAERS Safety Report 7045638-0 (Version None)
Quarter: 2010Q4

REPORT INFORMATION
  Report Type: 
  Country: None (occurrence: None)
  Receive Date: 20101014
  Receipt Date: 20101005
  Transmission Date: 20110411
  Serious: Yes (Other)
  Sender: FDA-Public Use
  Company Number: DE-ASTRAZENECA-2010SE43755

PATIENT
  Age: 25732 Day
  Sex: Male
  Weight: 80 kg

DRUGS (3)
  1. NAROPIN [Suspect]
     Indication: PROCEDURAL PAIN
     Dosage: 2 MG/ML, 6 MG/H VIA PDC
     Route: 008
  2. NAROPIN [Suspect]
     Dosage: INTRA-OPERATIVE
     Route: 008
  3. NAROPIN [Suspect]
     Dosage: 8 ML/HOUR, POSTOPERATIVE VIA PERFUSOR
     Route: 008

REACTIONS (3)
  - HYPOAESTHESIA [None]
  - PARAPARESIS [None]
  - SENSORIMOTOR DISORDER [None]
